FAERS Safety Report 14337962 (Version 2)
Quarter: 2018Q1

REPORT INFORMATION
  Report Type: Spontaneous
  Country: US (occurrence: US)
  Receive Date: 20171229
  Receipt Date: 20180105
  Transmission Date: 20180509
  Serious: Yes (Death, Hospitalization, Other)
  Sender: FDA-Public Use
  Company Number: US-009507513-1206USA02657

PATIENT
  Sex: Female

DRUGS (2)
  1. FOSAMAX [Suspect]
     Active Substance: ALENDRONATE SODIUM
     Indication: OSTEOPOROSIS
     Dosage: 70 MG, QW
     Route: 048
     Dates: start: 20050219, end: 2009
  2. ALENDRONATE SODIUM. [Suspect]
     Active Substance: ALENDRONATE SODIUM
     Indication: OSTEOPOROSIS
     Dosage: UNK
     Route: 065
     Dates: start: 2005, end: 2009

REACTIONS (16)
  - Chronic obstructive pulmonary disease [Unknown]
  - Hepatic cirrhosis [Unknown]
  - Anaemia [Unknown]
  - Rheumatic heart disease [Unknown]
  - Mitral valve incompetence [Unknown]
  - Hyperparathyroidism [Unknown]
  - Cardiac failure congestive [Unknown]
  - Hip fracture [Fatal]
  - Atrial fibrillation [Unknown]
  - Femur fracture [Fatal]
  - Fall [Unknown]
  - Diabetic nephropathy [Unknown]
  - End stage renal disease [Unknown]
  - Varices oesophageal [Unknown]
  - Insulin-requiring type 2 diabetes mellitus [Unknown]
  - Myelodysplastic syndrome [Unknown]

NARRATIVE: CASE EVENT DATE: 20090415
